FAERS Safety Report 6503696-3 (Version None)
Quarter: 2009Q4

REPORT INFORMATION
  Report Type: 
  Country: None (occurrence: None)
  Receive Date: 20091217
  Receipt Date: 20091208
  Transmission Date: 20100525
  Serious: Yes (Other)
  Sender: FDA-Public Use
  Company Number: PHHY2009JP49368

PATIENT
  Sex: Female
  Weight: 62 kg

DRUGS (12)
  1. FEMARA [Suspect]
     Indication: BREAST CANCER METASTATIC
     Dosage: 2.5 MG DAILY
     Route: 048
     Dates: start: 20090313, end: 20091001
  2. HERCEPTIN [Interacting]
     Indication: BREAST CANCER METASTATIC
     Dosage: 4 MG DAILY
     Dates: start: 20080606
  3. HERCEPTIN [Interacting]
     Dosage: 2 MG DAILY
     Dates: start: 20080613
  4. HERCEPTIN [Interacting]
     Dosage: 4 MG DAILY
     Dates: start: 20090327
  5. BLOPRESS [Concomitant]
     Dosage: 12 MG, UNK
     Route: 048
  6. ASPIRIN [Concomitant]
     Dosage: 100 MG, UNK
     Route: 048
  7. PRAVASTATIN [Concomitant]
     Dosage: 10 MG, UNK
     Route: 048
  8. ALLOTOP-L [Concomitant]
     Dosage: 30 MG, UNK
     Route: 048
  9. RENIVACE [Concomitant]
     Dosage: 5 MG, UNK
     Route: 048
  10. DEPAS [Concomitant]
     Dosage: 0.5 MG, UNK
     Route: 048
  11. LOXONIN [Concomitant]
     Dosage: UNK
     Route: 048
  12. ARIMIDEX [Concomitant]
     Indication: BREAST CANCER METASTATIC
     Dosage: 1 DF, UNK
     Route: 048

REACTIONS (3)
  - GRIP STRENGTH DECREASED [None]
  - JOINT CONTRACTURE [None]
  - MUSCULOSKELETAL STIFFNESS [None]
